FAERS Safety Report 8370404-3 (Version None)
Quarter: 2012Q2

REPORT INFORMATION
  Report Type: 
  Country: None (occurrence: None)
  Receive Date: 20120518
  Receipt Date: 20120507
  Transmission Date: 20120825
  Serious: Yes (Hospitalization)
  Sender: FDA-Public Use
  Company Number: US-JNJFOC-20120509332

PATIENT
  Sex: Male
  Weight: 72.2 kg

DRUGS (11)
  1. SINGULAIR [Concomitant]
  2. ZYRTEC [Concomitant]
  3. GUAIFENESIN / CODEINE [Concomitant]
  4. REMICADE [Suspect]
     Indication: CROHN'S DISEASE
     Route: 042
     Dates: start: 20111006
  5. HYOSCYAMINE [Concomitant]
  6. HYDROCODONE BITARTRATE + ACETAMINOPHEN [Concomitant]
  7. PREVACID [Concomitant]
  8. BENADRYL [Concomitant]
  9. ACETAMINOPHEN [Concomitant]
  10. MIRALAX [Concomitant]
  11. ALBUTEROL [Concomitant]

REACTIONS (1)
  - DEPRESSION [None]
